FAERS Safety Report 17892273 (Version 1)
Quarter: 2020Q2

REPORT INFORMATION
  Report Type: Spontaneous
  Country: IL (occurrence: IL)
  Receive Date: 20200612
  Receipt Date: 20200612
  Transmission Date: 20200714
  Serious: Yes (Hospitalization)
  Sender: FDA-Public Use
  Company Number: NVSC2020IL163992

PATIENT
  Sex: Male

DRUGS (1)
  1. CANAKINUMAB. [Suspect]
     Active Substance: CANAKINUMAB
     Indication: STILL^S DISEASE
     Dosage: UNK
     Route: 065

REACTIONS (2)
  - Haematoma [Unknown]
  - Pain in extremity [Unknown]
